FAERS Safety Report 12196301 (Version 1)
Quarter: 2016Q1

REPORT INFORMATION
  Report Type: Spontaneous
  Country: FR (occurrence: FR)
  Receive Date: 20160321
  Receipt Date: 20160321
  Transmission Date: 20160526
  Serious: Yes (Hospitalization)
  Sender: FDA-Public Use
  Company Number: FR-TEVA-642826ISR

PATIENT
  Age: 46 Year
  Sex: Female
  Weight: 84.8 kg

DRUGS (7)
  1. LOGOTRON [Concomitant]
     Dosage: USUAL TREATMENT
  2. HYPERIUM [Concomitant]
     Active Substance: RILMENIDINE PHOSPHATE
     Dosage: USUAL TREATMENT
  3. AMLOR [Concomitant]
     Active Substance: AMLODIPINE BESYLATE
     Dosage: USUAL TREATMENT
  4. ALDACTONE [Concomitant]
     Active Substance: SPIRONOLACTONE
     Dosage: USUAL TREATMENT
  5. LASILIX [Concomitant]
     Active Substance: FUROSEMIDE
     Dosage: USUAL TREATMENT
  6. DOXORUBICINE TEVA [Suspect]
     Active Substance: DOXORUBICIN
     Indication: UTERINE LEIOMYOSARCOMA
     Dosage: FIRST COURSE OF CHEMOTHERAPY
     Route: 042
     Dates: start: 20160210, end: 20160211
  7. TARDYFERON [Concomitant]
     Active Substance: FERROUS SULFATE\FOLIC ACID
     Dosage: USUAL TREATMENT

REACTIONS (4)
  - Agranulocytosis [Recovered/Resolved]
  - Malaise [Recovered/Resolved]
  - Myalgia [Recovered/Resolved]
  - Headache [Recovered/Resolved]

NARRATIVE: CASE EVENT DATE: 20160210
